FAERS Safety Report 15331495 (Version 1)
Quarter: 2018Q3

REPORT INFORMATION
  Report Type: Report from Study
  Country: KR (occurrence: KR)
  Receive Date: 20180829
  Receipt Date: 20180829
  Transmission Date: 20181010
  Serious: Yes (Other)
  Sender: FDA-Public Use
  Company Number: KR-TAKEDA-2018MPI010894

PATIENT

DRUGS (5)
  1. DEXAMETHASONE. [Suspect]
     Active Substance: DEXAMETHASONE
     Indication: PLASMA CELL MYELOMA
     Dosage: UNK
     Route: 065
  2. THALIDOMIDE [Suspect]
     Active Substance: THALIDOMIDE
     Indication: PLASMA CELL MYELOMA
     Dosage: UNK
     Route: 065
  3. PREDNISONE. [Suspect]
     Active Substance: PREDNISONE
     Indication: PLASMA CELL MYELOMA
     Dosage: UNK
     Route: 065
  4. VELCADE [Suspect]
     Active Substance: BORTEZOMIB
     Indication: PLASMA CELL MYELOMA
     Dosage: UNK
     Route: 065
  5. MELPHALAN. [Suspect]
     Active Substance: MELPHALAN
     Indication: PLASMA CELL MYELOMA
     Dosage: UNK
     Route: 065

REACTIONS (9)
  - Asthenia [Unknown]
  - Amyloidosis [Unknown]
  - Back pain [Unknown]
  - Fatigue [Unknown]
  - Dyspnoea [Unknown]
  - Infection [Unknown]
  - Nocturia [Unknown]
  - Neurological symptom [Unknown]
  - Bone pain [Unknown]
